FAERS Safety Report 8801167 (Version 3)
Quarter: 2013Q3

REPORT INFORMATION
  Report Type: Spontaneous
  Country: US (occurrence: US)
  Receive Date: 20120921
  Receipt Date: 20130830
  Transmission Date: 20140515
  Serious: Yes (Life-Threatening, Hospitalization)
  Sender: FDA-Public Use
  Company Number: US-BAYER-2012-098185

PATIENT
  Age: 46 Year
  Sex: Female
  Weight: 77.55 kg

DRUGS (7)
  1. YASMIN [Suspect]
     Indication: CONTRACEPTION
     Dosage: UNK
     Dates: start: 20030731, end: 20120618
  2. OCELLA [Suspect]
     Indication: CONTRACEPTION
     Dosage: UNK
     Dates: start: 20080715, end: 2008
  3. PREDNISONE [Concomitant]
     Indication: RASH
     Dosage: 20 MG, BID FOR 5 DAYS, FOLLOWED BY AN INTERVAL, THEN A TAPERED DOSE BEGINNING 01-JUN-2012
     Dates: start: 20120521, end: 201206
  4. LEVOXYL [Concomitant]
     Indication: HYPOTHYROIDISM
     Dosage: 0.125 MG, UNK
  5. SINGULAIR [Concomitant]
     Indication: SEASONAL ALLERGY
     Dosage: 10 MG, UNK
  6. ALBUTEROL [Concomitant]
  7. LEVOXINE [Concomitant]

REACTIONS (12)
  - Pulmonary embolism [None]
  - Pulmonary embolism [None]
  - Deep vein thrombosis [None]
  - Dyspnoea [None]
  - Pain [None]
  - Emotional distress [None]
  - Quality of life decreased [None]
  - Psychogenic pain disorder [None]
  - Injury [None]
  - Tachycardia [None]
  - Tachypnoea [None]
  - Sinus tachycardia [None]
